FAERS Safety Report 7191650-0 (Version None)
Quarter: 2010Q4

REPORT INFORMATION
  Report Type: 
  Country: None (occurrence: None)
  Receive Date: 20101223
  Receipt Date: 20101115
  Transmission Date: 20110411
  Serious: No
  Sender: FDA-Public Use
  Company Number: US-BAYER-2010-002813

PATIENT
  Sex: Male

DRUGS (6)
  1. LEVITRA [Suspect]
     Indication: ERECTILE DYSFUNCTION
     Dosage: 20 MG, PRN
     Route: 048
     Dates: start: 20101113
  2. TIMOLOL [Concomitant]
  3. UNCODEABLE ^UNCLASSIFIABLE^ [Concomitant]
  4. ALLOPURINOLUM [Concomitant]
  5. SIMVASTATIN [Concomitant]
  6. COZAAR [Concomitant]

REACTIONS (1)
  - FLUSHING [None]
